FAERS Safety Report 8459285-7 (Version None)
Quarter: 2012Q2

REPORT INFORMATION
  Report Type: 
  Country: None (occurrence: None)
  Receive Date: 20120622
  Receipt Date: 20120615
  Transmission Date: 20120825
  Serious: Yes (Life-Threatening, Hospitalization)
  Sender: FDA-Public Use
  Company Number: CO-ROCHE-GNE323077

PATIENT
  Sex: Male

DRUGS (2)
  1. ALBUTEROL [Concomitant]
     Indication: PRODUCT USED FOR UNKNOWN INDICATION
  2. XOLAIR [Suspect]
     Indication: ASTHMA
     Dosage: 2 AMP, 1/MONTH, DOSE=2 AMP, DAILY DOSE=.066 AMP, TOTAL DOSE=2 AMP
     Route: 058

REACTIONS (1)
  - ASTHMA [None]
